FAERS Safety Report 11853377 (Version 2)
Quarter: 2015Q4

REPORT INFORMATION
  Report Type: Report from Study
  Country: FR (occurrence: FR)
  Receive Date: 20151218
  Receipt Date: 20151231
  Transmission Date: 20160305
  Serious: Yes (Hospitalization, Other)
  Sender: FDA-Public Use
  Company Number: FR-GILEAD-2015-0188068

PATIENT
  Age: 64 Year
  Sex: Male
  Weight: 85 kg

DRUGS (4)
  1. COPEGUS [Concomitant]
     Active Substance: RIBAVIRIN
     Indication: HEPATITIS C
     Dosage: 400 MG, TID
     Dates: start: 20150820, end: 20151110
  2. SOFOSBUVIR [Suspect]
     Active Substance: SOFOSBUVIR
     Indication: HEPATITIS C
     Dosage: 400 MG, QD
     Route: 048
     Dates: start: 20150820, end: 20151110
  3. NICOTINE. [Concomitant]
     Active Substance: NICOTINE
     Indication: TOBACCO ABUSE
     Dosage: 14 MG, QD
  4. THYROZOL [Concomitant]
     Active Substance: METHIMAZOLE

REACTIONS (2)
  - Hyperthyroidism [Unknown]
  - Atrial fibrillation [Unknown]

NARRATIVE: CASE EVENT DATE: 20151014
